FAERS Safety Report 20187553 (Version 2)
Quarter: 2021Q4

REPORT INFORMATION
  Report Type: Report from Study
  Country: FR (occurrence: FR)
  Receive Date: 20211215
  Receipt Date: 20211221
  Transmission Date: 20220303
  Serious: Yes (Hospitalization)
  Sender: FDA-Public Use
  Company Number: FR-CELGENE-FRA-20211202264

PATIENT
  Age: 83 Year
  Sex: Male
  Weight: 76 kg

DRUGS (8)
  1. ENASIDENIB [Suspect]
     Active Substance: ENASIDENIB
     Indication: Myelodysplastic syndrome
     Dosage: 100 MILLIGRAM
     Route: 048
     Dates: start: 20210203, end: 20211201
  2. METFORMIN [Concomitant]
     Active Substance: METFORMIN HYDROCHLORIDE
     Indication: Diabetes mellitus
     Dosage: 850 MILLIGRAM
     Route: 048
  3. TOUJEO [Concomitant]
     Active Substance: INSULIN GLARGINE
     Indication: Diabetes mellitus
     Route: 058
  4. EXFORTE [Concomitant]
     Indication: Hypertension
     Dosage: 160 MILLIGRAM
     Route: 048
  5. KARDEGIC [Concomitant]
     Active Substance: ASPIRIN DL-LYSINE
     Indication: Hypertension
     Dosage: 160 MILLIGRAM
     Route: 048
  6. BACTRIM [Concomitant]
     Active Substance: SULFAMETHOXAZOLE\TRIMETHOPRIM
     Indication: Infection prophylaxis
     Route: 048
  7. VALACYCLOVIR HYDROCHLORIDE [Concomitant]
     Active Substance: VALACYCLOVIR HYDROCHLORIDE
     Indication: Infection prophylaxis
     Dosage: 500 MILLIGRAM
     Route: 048
  8. LEUCOVORIN CALCIUM [Concomitant]
     Active Substance: LEUCOVORIN CALCIUM
     Indication: Haematotoxicity
     Dosage: 5 MILLIGRAM
     Route: 048

REACTIONS (1)
  - COVID-19 [Not Recovered/Not Resolved]

NARRATIVE: CASE EVENT DATE: 20211201
